FAERS Safety Report 6991394-1 (Version None)
Quarter: 2010Q3

REPORT INFORMATION
  Report Type: 
  Country: None (occurrence: None)
  Receive Date: 20100916
  Receipt Date: 20090818
  Transmission Date: 20110219
  Serious: No
  Sender: FDA-Public Use
  Company Number: US-WYE-H10640009

PATIENT
  Sex: Female
  Weight: 78.09 kg

DRUGS (5)
  1. PRISTIQ [Suspect]
     Indication: DEPRESSION
     Route: 048
     Dates: start: 20090801
  2. PRISTIQ [Suspect]
     Indication: ANXIETY
  3. FISH OIL, HYDROGENATED [Concomitant]
  4. LORAZEPAM [Concomitant]
  5. TRAMADOL [Concomitant]

REACTIONS (1)
  - INITIAL INSOMNIA [None]
